FAERS Safety Report 13777069 (Version 1)
Quarter: 2017Q3

REPORT INFORMATION
  Report Type: Spontaneous
  Country: US (occurrence: US)
  Receive Date: 20170721
  Receipt Date: 20170721
  Transmission Date: 20171127
  Serious: Yes (Other)
  Sender: FDA-Public Use
  Company Number: None

PATIENT
  Age: 83 Year
  Sex: Male
  Weight: 72 kg

DRUGS (5)
  1. FLUOXETINE [Concomitant]
     Active Substance: FLUOXETINE HYDROCHLORIDE
  2. ATORVASTATIN [Concomitant]
     Active Substance: ATORVASTATIN
  3. ASPIRIN. [Concomitant]
     Active Substance: ASPIRIN
  4. TYLENOL [Concomitant]
     Active Substance: ACETAMINOPHEN
  5. CAPECITABINE. [Suspect]
     Active Substance: CAPECITABINE
     Indication: RECTAL CANCER
     Dosage: ?          OTHER DOSE:MG;?
     Route: 048
     Dates: start: 20170327, end: 20170721

REACTIONS (1)
  - Disease progression [None]

NARRATIVE: CASE EVENT DATE: 20170713
